FAERS Safety Report 9934054 (Version 1)
Quarter: 2014Q1

REPORT INFORMATION
  Report Type: Spontaneous
  Country: US (occurrence: US)
  Receive Date: 20140228
  Receipt Date: 20140228
  Transmission Date: 20141002
  Serious: No
  Sender: FDA-Public Use
  Company Number: US-MYLANLABS-2013S1008299

PATIENT
  Sex: Male

DRUGS (1)
  1. METFORMIN HYDROCHLORIDE TABLETS USP [Suspect]
     Indication: DIABETES MELLITUS

REACTIONS (2)
  - Drug ineffective [Not Recovered/Not Resolved]
  - Diabetes mellitus [Not Recovered/Not Resolved]
